FAERS Safety Report 5854349-6 (Version None)
Quarter: 2008Q3

REPORT INFORMATION
  Report Type: 
  Country: None (occurrence: None)
  Receive Date: 20080822
  Receipt Date: 20080819
  Transmission Date: 20090109
  Serious: Yes (Other)
  Sender: FDA-Public Use
  Company Number: BR-BOEHRINGER INGELHEIM GMBH, GERMANY-2008-DE-04884GD

PATIENT
  Sex: Female

DRUGS (3)
  1. PRAMIPEXOLE DIHYDROCHLORIDE [Suspect]
     Indication: PARKINSON'S DISEASE
  2. AMANTADINE HCL [Suspect]
     Indication: PARKINSON'S DISEASE
  3. LEVODOPA/BENSERAZIDE [Suspect]
     Indication: PARKINSON'S DISEASE

REACTIONS (2)
  - DYSKINESIA [None]
  - PARKINSON'S DISEASE [None]
